FAERS Safety Report 9646528 (Version 1)
Quarter: 2013Q4

REPORT INFORMATION
  Report Type: Spontaneous
  Country: BR (occurrence: BR)
  Receive Date: 20131025
  Receipt Date: 20131025
  Transmission Date: 20140711
  Serious: Yes (Hospitalization)
  Sender: FDA-Public Use
  Company Number: BR-ASTRAZENECA-2013SE77802

PATIENT
  Age: 46 Year
  Sex: Male
  Weight: 76 kg

DRUGS (4)
  1. SELOZOK [Suspect]
     Route: 048
     Dates: start: 2010
  2. CRESTOR [Suspect]
     Route: 048
     Dates: start: 2010
  3. SPIRONOLACTONE [Concomitant]
     Dates: start: 2010
  4. PANTOPRAZOLE [Concomitant]
     Dates: start: 2010

REACTIONS (1)
  - Coronary artery occlusion [Recovered/Resolved]
